FAERS Safety Report 26169075 (Version 1)
Quarter: 2025Q4

REPORT INFORMATION
  Report Type: Spontaneous
  Country: KR (occurrence: KR)
  Receive Date: 20251217
  Receipt Date: 20251217
  Transmission Date: 20260119
  Serious: Yes (Other)
  Sender: Kenvue
  Company Number: KR-KENVUE-20251204052

PATIENT
  Age: 76 Year

DRUGS (2)
  1. TYLENOL 8HR [Suspect]
     Active Substance: ACETAMINOPHEN
     Indication: Syncope
     Dosage: 650 MILLIGRAM, ONCE A DAY
     Route: 061
  2. NAPROXEN SODIUM [Concomitant]
     Active Substance: NAPROXEN SODIUM
     Indication: Hypertension
     Dosage: 275 MILLIGRAM, ONCE A DAY
     Route: 061

REACTIONS (2)
  - Depressed level of consciousness [Recovered/Resolved]
  - Hypotension [Recovered/Resolved]
